FAERS Safety Report 9550584 (Version 1)
Quarter: 2013Q3

REPORT INFORMATION
  Report Type: Spontaneous
  Country: US (occurrence: US)
  Receive Date: 20130924
  Receipt Date: 20130924
  Transmission Date: 20140515
  Serious: No
  Sender: FDA-Public Use
  Company Number: US-SANOFI-AVENTIS-2013SA036820

PATIENT
  Sex: Female

DRUGS (1)
  1. AUBAGIO [Suspect]
     Indication: MULTIPLE SCLEROSIS
     Dosage: TAKEN FROM -3 MONTHS AGO
     Route: 048

REACTIONS (4)
  - Hypertension [Unknown]
  - Weight decreased [Unknown]
  - Hepatic enzyme increased [Recovered/Resolved]
  - Hypoaesthesia [Recovered/Resolved]
